FAERS Safety Report 5408492-6 (Version None)
Quarter: 2007Q3

REPORT INFORMATION
  Report Type: 
  Country: None (occurrence: None)
  Receive Date: 20070808
  Receipt Date: 20070806
  Transmission Date: 20080115
  Serious: Yes (Disabling)
  Sender: FDA-Public Use
  Company Number: US-MERCK-0708USA00847

PATIENT
  Sex: Female

DRUGS (1)
  1. FOSAMAX [Suspect]
     Route: 048
     Dates: start: 20000101, end: 20050101

REACTIONS (2)
  - OSTEONECROSIS [None]
  - TOOTH DISORDER [None]
